FAERS Safety Report 4556380-X (Version None)
Quarter: 2005Q1

REPORT INFORMATION
  Report Type: 
  Country: None (occurrence: None)
  Receive Date: 20050103
  Receipt Date: 20040820
  Transmission Date: 20050727
  Serious: Yes (Other)
  Sender: FDA-Public Use
  Company Number: 2004UW17711

PATIENT
  Sex: Female

DRUGS (1)
  1. CRESTOR [Suspect]
     Indication: BLOOD CHOLESTEROL INCREASED
     Dates: end: 20040722

REACTIONS (4)
  - CONSTIPATION [None]
  - COUGH [None]
  - LACRIMATION INCREASED [None]
  - NASAL SINUS DRAINAGE [None]
